FAERS Safety Report 6115346-9 (Version None)
Quarter: 2009Q1

REPORT INFORMATION
  Report Type: 
  Country: None (occurrence: None)
  Receive Date: 20090313
  Receipt Date: 20090218
  Transmission Date: 20090719
  Serious: Yes (Death)
  Sender: FDA-Public Use
  Company Number: MY-ASTRAZENECA-2009AP01557

PATIENT
  Age: 15 Year
  Sex: Male

DRUGS (3)
  1. MERONEM [Suspect]
     Indication: ENCEPHALITIS
     Route: 042
     Dates: start: 20080622, end: 20080628
  2. RANITIDINE [Concomitant]
     Indication: PROPHYLAXIS
     Dates: start: 20080623
  3. PHENYTOIN [Concomitant]
     Indication: CONVULSION
     Dates: start: 20080616

REACTIONS (4)
  - CLOSTRIDIAL INFECTION [None]
  - DIARRHOEA [None]
  - PSEUDOMEMBRANOUS COLITIS [None]
  - PYREXIA [None]
